FAERS Safety Report 26007199 (Version 2)
Quarter: 2025Q4

REPORT INFORMATION
  Report Type: Spontaneous
  Country: KE (occurrence: KE)
  Receive Date: 20251106
  Receipt Date: 20251120
  Transmission Date: 20260117
  Serious: Yes (Hospitalization, Other)
  Sender: BRISTOL-MYERS SQUIBB COMPANY
  Company Number: KE-BRISTOL-MYERS SQUIBB COMPANY-2025-150358

PATIENT
  Age: 56 Year
  Sex: Female

DRUGS (6)
  1. OPDIVO [Suspect]
     Active Substance: NIVOLUMAB
     Indication: Oesophageal carcinoma
     Dosage: 6 DOSES
  2. OPDIVO [Suspect]
     Active Substance: NIVOLUMAB
  3. OPDIVO [Suspect]
     Active Substance: NIVOLUMAB
  4. OPDIVO [Suspect]
     Active Substance: NIVOLUMAB
  5. OPDIVO [Suspect]
     Active Substance: NIVOLUMAB
  6. OPDIVO [Suspect]
     Active Substance: NIVOLUMAB

REACTIONS (3)
  - General physical health deterioration [Unknown]
  - Off label use [Unknown]
  - Oesophageal cancer metastatic [Unknown]
